FAERS Safety Report 4758209-3 (Version None)
Quarter: 2005Q3

REPORT INFORMATION
  Report Type: 
  Country: None (occurrence: None)
  Receive Date: 20050826
  Receipt Date: 20050627
  Transmission Date: 20060218
  Serious: No
  Sender: FDA-Public Use
  Company Number: WAES 0506USA03817

PATIENT
  Age: 52 Year
  Sex: Female

DRUGS (4)
  1. ZETIA [Suspect]
     Indication: BLOOD CHOLESTEROL INCREASED
     Dosage: 10 MG/DAILY/PO
     Route: 048
  2. LIPITOR [Concomitant]
  3. PRINIVIL [Concomitant]
  4. METFORMIN HCL [Concomitant]

REACTIONS (1)
  - LETHARGY [None]
